FAERS Safety Report 5651697-X (Version None)
Quarter: 2008Q1

REPORT INFORMATION
  Report Type: 
  Country: None (occurrence: None)
  Receive Date: 20080304
  Receipt Date: 20080219
  Transmission Date: 20080703
  Serious: Yes (Hospitalization)
  Sender: FDA-Public Use
  Company Number: ABX44-08-0056

PATIENT
  Age: 61 Year
  Sex: Female
  Weight: 69.5818 kg

DRUGS (11)
  1. ABRAXANE [Suspect]
     Indication: OVARIAN CANCER RECURRENT
     Dosage: LAST DOSE (160 MG) PRIOR TO SAE ON 18-FEB-08. (DAY 1, 8, 15 Q 28 DAYS.), INTRAVENOUS
     Route: 042
     Dates: start: 20070822
  2. AVASTIN [Suspect]
     Indication: OVARIAN CANCER RECURRENT
     Dosage: LAST DOSE (625 MG) PRIOR TO SAE ON 18-FEB-08 (DAY 1, 15 Q 28 DAYS), INTRAVENOUS
     Route: 042
     Dates: start: 20070822
  3. CALCIUM (CALCIUM) [Concomitant]
  4. CYMBALTA [Concomitant]
  5. GLUTAMINE [Concomitant]
  6. VITAMIN E (TCOPHEROL) [Concomitant]
  7. NEURONTIN [Concomitant]
  8. LORTAB [Concomitant]
  9. PHENERGAN HCL [Concomitant]
  10. ZOFRAN [Concomitant]
  11. SENOKOT S (SENOKOT-S) [Concomitant]

REACTIONS (1)
  - COLITIS [None]
